FAERS Safety Report 16566342 (Version 1)
Quarter: 2019Q3

REPORT INFORMATION
  Report Type: Spontaneous
  Country: US (occurrence: US)
  Receive Date: 20190712
  Receipt Date: 20190712
  Transmission Date: 20191004
  Serious: Yes (Other)
  Sender: FDA-Public Use
  Company Number: US-AMREGENT-20191424

PATIENT
  Age: 59 Year
  Sex: Male

DRUGS (3)
  1. LIDOCAINE HCL INJECTION, USP (0625-25) [Suspect]
     Active Substance: LIDOCAINE HYDROCHLORIDE
     Dosage: UNKNOWN; 10 ML ALIQUOTS
     Route: 051
  2. BUPIVACAINE. [Suspect]
     Active Substance: BUPIVACAINE
     Dosage: UNKNOWN; 10 ML ALIQUOTS
     Route: 051
  3. EPINEPHRINE INJECTION, USP (0517-1071-01) [Suspect]
     Active Substance: EPINEPHRINE
     Dosage: UNKNOWN; 10 ML ALIQUOTS
     Route: 051

REACTIONS (2)
  - Anal incontinence [Unknown]
  - Anal sphincter atony [Unknown]
